FAERS Safety Report 9219489 (Version 1)
Quarter: 2013Q2

REPORT INFORMATION
  Report Type: Spontaneous
  Country: US (occurrence: None)
  Receive Date: 20130405
  Receipt Date: 20130405
  Transmission Date: 20140414
  Serious: Yes (Hospitalization, Other)
  Sender: FDA-Public Use
  Company Number: 2013SGN00187

PATIENT
  Age: 69 Year
  Sex: Male

DRUGS (1)
  1. ADCETRIS (BRENTUXIMAB VEDOTIN) INJECTION [Suspect]
     Indication: T-CELL LYMPHOMA RECURRENT
     Dates: start: 20130204, end: 20130204

REACTIONS (5)
  - Tumour lysis syndrome [None]
  - Tachycardia [None]
  - Dehydration [None]
  - Neutropenia [None]
  - Off label use [None]
